FAERS Safety Report 14271688 (Version 1)
Quarter: 2017Q4

REPORT INFORMATION
  Report Type: Spontaneous
  Country: US (occurrence: US)
  Receive Date: 20171211
  Receipt Date: 20171211
  Transmission Date: 20180321
  Serious: Yes (Disabling)
  Sender: FDA-Public Use
  Company Number: None

PATIENT
  Age: 44 Year
  Sex: Female
  Weight: 50.4 kg

DRUGS (2)
  1. HALOG [Suspect]
     Active Substance: HALCINONIDE
     Indication: ECZEMA
     Route: 061
     Dates: start: 20160308, end: 20160308
  2. CLOBEX [Suspect]
     Active Substance: CLOBETASOL PROPIONATE
     Indication: ECZEMA
     Route: 061
     Dates: start: 20110115, end: 20160308

REACTIONS (11)
  - Erythema [None]
  - Asthenia [None]
  - Skin exfoliation [None]
  - Skin burning sensation [None]
  - Weight decreased [None]
  - Withdrawal syndrome [None]
  - Alopecia [None]
  - Oedema [None]
  - Pruritus [None]
  - Secretion discharge [None]
  - Chills [None]
